FAERS Safety Report 5154092-5 (Version None)
Quarter: 2006Q4

REPORT INFORMATION
  Report Type: 
  Country: None (occurrence: None)
  Receive Date: 20061116
  Receipt Date: 20061116
  Transmission Date: 20070319
  Serious: Yes (Hospitalization)
  Sender: FDA-Public Use
  Company Number: None

PATIENT
  Age: 36 Year
  Sex: Male
  Weight: 87.2 kg

DRUGS (12)
  1. TEGRETOL [Suspect]
  2. DIPHENHYDRAMINE HCL [Concomitant]
  3. TRAMADOL HCL [Concomitant]
  4. HYDROXYZINE [Concomitant]
  5. LORAZEPAM [Concomitant]
  6. OMEPRAZOLE [Concomitant]
  7. MAGNESIUM HYDROXIDE SUSP [Concomitant]
  8. ALOH/MGOH/SIMTH XTRA STRENGTH SUSP [Concomitant]
  9. ACETAMINOPHEN [Concomitant]
  10. MULTIVITAMINS/ZINC (CENTRUM) [Concomitant]
  11. THIAMINE [Concomitant]
  12. LITHIUM CARBONATE [Concomitant]

REACTIONS (1)
  - RASH [None]
